FAERS Safety Report 18743371 (Version 1)
Quarter: 2021Q1

REPORT INFORMATION
  Report Type: Spontaneous
  Country: US (occurrence: US)
  Receive Date: 20210114
  Receipt Date: 20210114
  Transmission Date: 20210419
  Serious: No
  Sender: FDA-Public Use
  Company Number: US-ELI_LILLY_AND_COMPANY-US202012011871

PATIENT
  Age: 65 Year
  Sex: Female
  Weight: 72.6 kg

DRUGS (15)
  1. AMBRISENTAN [Suspect]
     Active Substance: AMBRISENTAN
     Indication: PULMONARY ARTERIAL HYPERTENSION
     Dosage: UNK UNK, UNKNOWN
     Route: 065
  2. IRON [Concomitant]
     Active Substance: IRON
     Indication: PRODUCT USED FOR UNKNOWN INDICATION
  3. TYVASO [Suspect]
     Active Substance: TREPROSTINIL
     Dosage: 12 UG, DAILY
     Route: 055
     Dates: start: 20200426
  4. TYVASO [Suspect]
     Active Substance: TREPROSTINIL
     Dosage: 1854 UG, QID
     Route: 055
     Dates: start: 202004
  5. CRESTOR [Concomitant]
     Active Substance: ROSUVASTATIN CALCIUM
     Indication: PRODUCT USED FOR UNKNOWN INDICATION
  6. SILDENAFIL. [Suspect]
     Active Substance: SILDENAFIL
     Indication: PULMONARY ARTERIAL HYPERTENSION
     Dosage: 10 MG, UNKNOWN
     Route: 065
     Dates: start: 202009
  7. TYVASO [Suspect]
     Active Substance: TREPROSTINIL
     Dosage: 18 UG, UNKNOWN
     Route: 055
     Dates: start: 20200425
  8. TYVASO [Suspect]
     Active Substance: TREPROSTINIL
     Dosage: UNK
     Route: 055
  9. TYVASO [Suspect]
     Active Substance: TREPROSTINIL
     Dosage: UNK
     Route: 055
  10. TADALAFIL. [Suspect]
     Active Substance: TADALAFIL
     Indication: PULMONARY ARTERIAL HYPERTENSION
     Dosage: UNK UNK, UNKNOWN
     Route: 065
     Dates: end: 2020
  11. TYVASO [Suspect]
     Active Substance: TREPROSTINIL
     Indication: PULMONARY ARTERIAL HYPERTENSION
     Dosage: 18 UG, TID
     Route: 055
     Dates: start: 20200421
  12. TYVASO [Suspect]
     Active Substance: TREPROSTINIL
     Dosage: UNK
     Route: 055
  13. TYVASO [Suspect]
     Active Substance: TREPROSTINIL
     Dosage: 6 (NO UNITS PROVIDED), UNKNOWN
     Route: 055
     Dates: start: 2020
  14. TYVASO [Suspect]
     Active Substance: TREPROSTINIL
     Dosage: 18 UG, QID
     Route: 055
     Dates: start: 2020
  15. DEMADEX [Concomitant]
     Active Substance: TORSEMIDE
     Indication: PRODUCT USED FOR UNKNOWN INDICATION

REACTIONS (2)
  - Drug intolerance [Unknown]
  - Dyspnoea [Unknown]

NARRATIVE: CASE EVENT DATE: 2020
